FAERS Safety Report 5723510-3 (Version None)
Quarter: 2008Q2

REPORT INFORMATION
  Report Type: 
  Country: None (occurrence: None)
  Receive Date: 20080430
  Receipt Date: 20080423
  Transmission Date: 20081010
  Serious: Yes (Hospitalization)
  Sender: FDA-Public Use
  Company Number: CA-TEVA-170828USA

PATIENT
  Age: 47 Year
  Sex: Male

DRUGS (2)
  1. NOVO-AZATHIOPRINE,AZATHIOPRINE TABLETS,50 MG [Suspect]
     Indication: COLITIS ULCERATIVE
  2. PREDNISONE [Suspect]
     Indication: COLITIS ULCERATIVE

REACTIONS (1)
  - ACUTE FEBRILE NEUTROPHILIC DERMATOSIS [None]
